FAERS Safety Report 10083478 (Version 4)
Quarter: 2014Q2

REPORT INFORMATION
  Report Type: Report from Study
  Country: GB (occurrence: GB)
  Receive Date: 20140417
  Receipt Date: 20140612
  Transmission Date: 20141212
  Serious: Yes (Hospitalization, Other)
  Sender: FDA-Public Use
  Company Number: GB-009507513-1403GBR010803

PATIENT
  Age: 66 Year
  Sex: Male
  Weight: 70.1 kg

DRUGS (20)
  1. VORINOSTAT [Suspect]
     Indication: ACUTE MYELOID LEUKAEMIA
     Dosage: DOSE LAST GEVEN 300.0 MG, BID (CURRENT CYCLE 1)
     Route: 048
     Dates: start: 20140212, end: 20140217
  2. VORINOSTAT [Suspect]
     Dosage: DOSE LAST GEVEN 300.0 MG, BID (CURRENT CYCLE 2)UNK
     Route: 048
     Dates: end: 20140326
  3. 5-AZACYTIDINE [Suspect]
     Indication: ACUTE MYELOID LEUKAEMIA
     Dosage: 165 MICROGRAM PER SQ METER, UNK
     Route: 058
     Dates: start: 20140210, end: 20140217
  4. 5-AZACYTIDINE [Suspect]
     Dosage: 160 MICROGRAM PER SQ METER, QD
     Route: 058
     Dates: end: 20140325
  5. ACYCLOVIR [Concomitant]
     Indication: ANTIFUNGAL TREATMENT
     Dosage: UNK
     Dates: start: 201310
  6. ADCAL (CALCIUM CARBONATE) [Concomitant]
     Indication: BONE DISORDER
     Dosage: UNK
     Dates: start: 201006
  7. ALENDRONIC ACID [Concomitant]
     Indication: BONE DISORDER
     Dosage: UNK
     Dates: start: 201006
  8. ALLOPURINOL [Concomitant]
     Dosage: UNK
     Dates: start: 20140210
  9. AMITRIPTYLINE HYDROCHLORIDE [Concomitant]
     Indication: ANALGESIC THERAPY
     Dosage: UNK
     Dates: start: 201307
  10. BENZYDAMINE HYDROCHLORIDE [Concomitant]
     Dosage: UNK
     Dates: start: 20140326
  11. AMOXICILLIN (+) CLAVULANATE POTASSIUM [Concomitant]
     Dosage: UNK
     Dates: start: 20140328
  12. ENOXAPARIN SODIUM [Concomitant]
     Dosage: UNK
     Dates: start: 20140329
  13. GABAPENTIN [Concomitant]
     Indication: ANALGESIC THERAPY
     Dosage: UNK
     Dates: start: 20130715
  14. GLICLAZIDE [Concomitant]
     Indication: DIABETES MELLITUS
     Dosage: UNK
     Dates: start: 201312
  15. NYSTATIN [Concomitant]
     Dosage: UNK
     Route: 048
     Dates: start: 20131015
  16. OMEPRAZOLE [Concomitant]
     Indication: DYSPEPSIA
     Dosage: UNK
     Dates: start: 20100615
  17. POSACONAZOLE [Concomitant]
     Indication: ANTIFUNGAL TREATMENT
     Dosage: UNK
     Dates: start: 201310
  18. PREDNISOLONE [Concomitant]
     Indication: ARTHRITIS
     Dosage: UNK
     Dates: start: 2010
  19. SENNA [Concomitant]
     Dosage: UNK
     Dates: start: 20140326
  20. CHLORHEXIDINE HYDROCHLORIDE [Concomitant]
     Dosage: UNK
     Dates: start: 20131015

REACTIONS (9)
  - Headache [Recovered/Resolved]
  - Dyspnoea [Recovered/Resolved]
  - Nausea [Recovered/Resolved]
  - Dysphagia [Not Recovered/Not Resolved]
  - Oropharyngeal pain [Not Recovered/Not Resolved]
  - Dysarthria [Not Recovered/Not Resolved]
  - Pyrexia [Recovered/Resolved]
  - Pyrexia [Recovered/Resolved]
  - Deafness [Unknown]
